FAERS Safety Report 5597131-X (Version None)
Quarter: 2008Q1

REPORT INFORMATION
  Report Type: 
  Country: None (occurrence: None)
  Receive Date: 20080121
  Receipt Date: 20080111
  Transmission Date: 20080703
  Serious: Yes (Hospitalization)
  Sender: FDA-Public Use
  Company Number: PHBS2008NL00777

PATIENT
  Sex: Female

DRUGS (6)
  1. DIOVAN [Suspect]
     Dosage: UNK, UNK
     Route: 048
     Dates: start: 20071123
  2. INDOMETHACIN [Concomitant]
  3. CORTICOSTEROIDS [Concomitant]
  4. ULTRACORTENOL [Concomitant]
  5. METFORMIN [Concomitant]
  6. ALOVERT [Concomitant]

REACTIONS (2)
  - CATARACT OPERATION [None]
  - EYE OEDEMA [None]
